FAERS Safety Report 7720291-9 (Version None)
Quarter: 2011Q3

REPORT INFORMATION
  Report Type: 
  Country: None (occurrence: None)
  Receive Date: 20110825
  Receipt Date: 20110817
  Transmission Date: 20111222
  Serious: Yes (Death)
  Sender: FDA-Public Use
  Company Number: GRT 2011-12734

PATIENT
  Sex: Male

DRUGS (5)
  1. LIDODERM [Suspect]
     Indication: PAIN
     Dosage: 1 PATCH A DAY
     Dates: start: 20101101
  2. OXYCODONE HCL [Concomitant]
  3. IBUPROFEN [Concomitant]
  4. ACETAMINOPHEN [Concomitant]
  5. METOCLOPRAMIDE [Concomitant]

REACTIONS (3)
  - PARAESTHESIA ORAL [None]
  - TOXICITY TO VARIOUS AGENTS [None]
  - NAUSEA [None]
